FAERS Safety Report 5579023-5 (Version None)
Quarter: 2007Q4

REPORT INFORMATION
  Report Type: 
  Country: None (occurrence: None)
  Receive Date: 20071227
  Receipt Date: 20071212
  Transmission Date: 20080405
  Serious: Yes (Death)
  Sender: FDA-Public Use
  Company Number: GXKR2007US10679

PATIENT
  Age: 43 Year
  Sex: Female

DRUGS (4)
  1. AMITRIPTLINE HCL [Suspect]
  2. HEROIN (DIAMORPHINE) [Suspect]
     Indication: DRUG ABUSER
     Dosage: INTRAVENOUS
     Route: 042
  3. ETHANOL (ETHANOL) [Concomitant]
  4. FLUOXETINE [Concomitant]

REACTIONS (5)
  - ALCOHOL USE [None]
  - CIRCULATORY COLLAPSE [None]
  - DRUG ABUSER [None]
  - DRUG TOXICITY [None]
  - OVERDOSE [None]
